FAERS Safety Report 10543432 (Version 2)
Quarter: 2014Q4

REPORT INFORMATION
  Report Type: Spontaneous
  Country: US (occurrence: None)
  Receive Date: 20141023
  Receipt Date: 20141209
  Transmission Date: 20150529
  Serious: Yes (Hospitalization)
  Sender: FDA-Public Use
  Company Number: CIO14071174

PATIENT
  Age: 44 Year
  Sex: Male
  Weight: 145.1 kg

DRUGS (1)
  1. CREST PRO-HEALTH CLINICAL GUM PROTECTION [Suspect]
     Active Substance: STANNOUS FLUORIDE
     Dosage: 1 APPLIC, 2/DAY FOR A SHORT TIME IN JULY 2014, INTRAORAL

REACTIONS (2)
  - Pharyngeal oedema [None]
  - Swollen tongue [None]
